FAERS Safety Report 9550669 (Version 1)
Quarter: 2013Q3

REPORT INFORMATION
  Report Type: Spontaneous
  Country: US (occurrence: US)
  Receive Date: 20130924
  Receipt Date: 20130924
  Transmission Date: 20140515
  Serious: No
  Sender: FDA-Public Use
  Company Number: US-SANOFI-AVENTIS-2013SA015824

PATIENT
  Age: 30 Year
  Sex: Female
  Weight: 58.96 kg

DRUGS (11)
  1. AUBAGIO [Suspect]
     Indication: MULTIPLE SCLEROSIS
     Route: 048
     Dates: start: 20121201, end: 201307
  2. MODAFINIL [Concomitant]
     Dates: start: 2012
  3. BACLOFEN [Concomitant]
     Dates: start: 2010
  4. ASPIRIN [Concomitant]
     Dates: start: 2011
  5. LACTOBACILLUS ACIDOPHILUS [Concomitant]
  6. POTASSIUM GLUCONATE [Concomitant]
  7. VITAMIN D [Concomitant]
  8. CALCIUM WITH VITAMIN D [Concomitant]
  9. MULTIVITAMINS [Concomitant]
  10. MAGNESIUM [Concomitant]
  11. NIACIN [Concomitant]

REACTIONS (3)
  - Acne [Not Recovered/Not Resolved]
  - Alopecia [Not Recovered/Not Resolved]
  - Hair texture abnormal [Not Recovered/Not Resolved]
